FAERS Safety Report 4393332-7 (Version None)
Quarter: 2004Q3

REPORT INFORMATION
  Report Type: 
  Country: None (occurrence: None)
  Receive Date: 20040701
  Receipt Date: 20040621
  Transmission Date: 20050211
  Serious: Yes (Disabling)
  Sender: FDA-Public Use
  Company Number: 2004218614CH

PATIENT
  Age: 78 Year
  Sex: Female

DRUGS (3)
  1. DETRUSITOL [Suspect]
     Indication: URINARY INCONTINENCE
     Dosage: 4 MG, QD, ORAL
     Route: 048
     Dates: start: 20040303, end: 20040407
  2. ARICEPT [Concomitant]
  3. ASPIRINA [Concomitant]

REACTIONS (3)
  - CONDITION AGGRAVATED [None]
  - CONSTIPATION [None]
  - DEMENTIA [None]
